FAERS Safety Report 25967683 (Version 4)
Quarter: 2025Q4

REPORT INFORMATION
  Report Type: Spontaneous
  Country: US (occurrence: US)
  Receive Date: 20251028
  Receipt Date: 20251121
  Transmission Date: 20260118
  Serious: No
  Sender: KARYOPHARM THERAPEUTICS
  Company Number: US-KARYOPHARM-2025KPT100864

PATIENT

DRUGS (35)
  1. SELINEXOR [Suspect]
     Active Substance: SELINEXOR
     Indication: Plasma cell myeloma
     Dosage: 80 MG TWICE WEEKLY
     Route: 048
     Dates: start: 20251020
  2. ACYCLOVIR [Concomitant]
     Active Substance: ACYCLOVIR
  3. ALPRAZOLAM [Concomitant]
     Active Substance: ALPRAZOLAM
  4. AMLODIPINE [Concomitant]
     Active Substance: AMLODIPINE BESYLATE
  5. ATIVAN [Concomitant]
     Active Substance: LORAZEPAM
  6. BACTRIM DS [Concomitant]
     Active Substance: SULFAMETHOXAZOLE\TRIMETHOPRIM
  7. CARVEDILOL [Concomitant]
     Active Substance: CARVEDILOL
  8. PROCHLORPERAZINE [Concomitant]
     Active Substance: PROCHLORPERAZINE
  9. DEXAMETHASONE [Concomitant]
     Active Substance: DEXAMETHASONE
  10. ZOFRAN [Concomitant]
     Active Substance: ONDANSETRON HYDROCHLORIDE
  11. GABAPENTIN [Concomitant]
     Active Substance: GABAPENTIN
  12. NORTRIPTYLINE [Concomitant]
     Active Substance: NORTRIPTYLINE
  13. LOSARTAN [Concomitant]
     Active Substance: LOSARTAN
  14. MIRTAZAPINE [Concomitant]
     Active Substance: MIRTAZAPINE
  15. OXYCODONE [Concomitant]
     Active Substance: OXYCODONE
  16. OXYCONTIN [Concomitant]
     Active Substance: OXYCODONE HYDROCHLORIDE
  17. DECADRON [Concomitant]
     Active Substance: DEXAMETHASONE
  18. FLUCONAZOLE [Concomitant]
     Active Substance: FLUCONAZOLE
  19. FUROSEMIDE [Concomitant]
     Active Substance: FUROSEMIDE
  20. ACETAMINOPHEN\HYDROCODONE [Concomitant]
     Active Substance: ACETAMINOPHEN\HYDROCODONE
  21. LEVOFLOXACIN [Concomitant]
     Active Substance: LEVOFLOXACIN
  22. LIDOCAINE\PRILOCAINE [Concomitant]
     Active Substance: LIDOCAINE\PRILOCAINE
  23. LISINOPRIL [Concomitant]
     Active Substance: LISINOPRIL
  24. MEGESTROL ACETATE [Concomitant]
     Active Substance: MEGESTROL ACETATE
  25. METHADONE [Concomitant]
     Active Substance: METHADONE HYDROCHLORIDE
  26. METHOCARBAMOL [Concomitant]
     Active Substance: METHOCARBAMOL
  27. MORPHINE SULFATE [Concomitant]
     Active Substance: MORPHINE SULFATE
  28. MUPIROCIN [Concomitant]
     Active Substance: MUPIROCIN
  29. OLANZAPINE [Concomitant]
     Active Substance: OLANZAPINE
  30. OMEPRAZOLE [Concomitant]
     Active Substance: OMEPRAZOLE
  31. ONDANSETRON [Concomitant]
     Active Substance: ONDANSETRON
  32. LASIX [Concomitant]
     Active Substance: FUROSEMIDE
  33. NORCO [Concomitant]
     Active Substance: ACETAMINOPHEN\HYDROCODONE BITARTRATE
  34. NAPROXEN [Concomitant]
     Active Substance: NAPROXEN
  35. GLYCEMA [Concomitant]

REACTIONS (7)
  - Pruritus [Not Recovered/Not Resolved]
  - Pain [Unknown]
  - Fatigue [Not Recovered/Not Resolved]
  - Decreased appetite [Not Recovered/Not Resolved]
  - Nausea [Not Recovered/Not Resolved]
  - Constipation [Recovered/Resolved]
  - Weight decreased [Unknown]

NARRATIVE: CASE EVENT DATE: 20250101
